FAERS Safety Report 11639828 (Version 2)
Quarter: 2015Q4

REPORT INFORMATION
  Report Type: Report from Study
  Country: ES (occurrence: ES)
  Receive Date: 20151019
  Receipt Date: 20151217
  Transmission Date: 20160304
  Serious: Yes (Hospitalization)
  Sender: FDA-Public Use
  Company Number: ES-ROCHE-1646735

PATIENT
  Age: 72 Year
  Sex: Male
  Weight: 85 kg

DRUGS (4)
  1. FOLINIC ACID [Suspect]
     Active Substance: LEUCOVORIN
     Indication: ADENOCARCINOMA OF COLON
     Dosage: DATE OF LAST DOSE (400 MG/M2) PRIOR TO SAE: 01/SEP/2015.?LAST CYCLE OF TREAMENT RECEIVED: 32
     Route: 042
     Dates: start: 20140411
  2. BEVACIZUMAB [Suspect]
     Active Substance: BEVACIZUMAB
     Indication: ADENOCARCINOMA OF COLON
     Dosage: DATE OF LAST DOSE PRIOR TO SAE: 01/SEP/2015?LAST CYCLE TREATMENT RECEIVED: 32
     Route: 042
     Dates: start: 20140411
  3. OXALIPLATIN. [Suspect]
     Active Substance: OXALIPLATIN
     Indication: ADENOCARCINOMA OF COLON
     Dosage: DATE OF LAST DOSE PRIOR TO SAE: 30/JUN/2014?LAST CYCLE TREATMENT RECEIVED: 6
     Route: 042
     Dates: start: 20140411
  4. 5-FLUOROURACIL [Suspect]
     Active Substance: FLUOROURACIL
     Indication: ADENOCARCINOMA OF COLON
     Dosage: DATE OF LAST DOSE (2800 MG/M2) PRIOR TO SAE: 01/SEP/2015?LAST CYCLE OF TREATMENT RECEIVED: 32
     Route: 042
     Dates: start: 20140411

REACTIONS (1)
  - Pyrexia [Recovered/Resolved]

NARRATIVE: CASE EVENT DATE: 20150909
